FAERS Safety Report 25556065 (Version 1)
Quarter: 2025Q3

REPORT INFORMATION
  Report Type: Spontaneous
  Country: CN (occurrence: CN)
  Receive Date: 20250715
  Receipt Date: 20250715
  Transmission Date: 20251020
  Serious: Yes (Hospitalization)
  Sender: PFIZER
  Company Number: CN-PFIZER INC-PV202500037834

PATIENT
  Age: 35 Year
  Sex: Male

DRUGS (9)
  1. XYNTHA [Suspect]
     Active Substance: MOROCTOCOG ALFA
     Indication: Haemophilia
     Route: 042
     Dates: start: 20241203
  2. XYNTHA [Suspect]
     Active Substance: MOROCTOCOG ALFA
     Dosage: 1000 IU, 2X/DAY
     Route: 040
     Dates: start: 20250103
  3. XYNTHA [Suspect]
     Active Substance: MOROCTOCOG ALFA
     Dosage: 1000 IU, 2X/WEEK
     Route: 042
     Dates: start: 20250219
  4. XYNTHA [Suspect]
     Active Substance: MOROCTOCOG ALFA
     Dosage: 1000 IU, 2X/WEEK
     Route: 058
     Dates: start: 20250328
  5. XYNTHA [Suspect]
     Active Substance: MOROCTOCOG ALFA
     Dosage: 1000 IU, 2X/DAY
     Route: 040
     Dates: start: 20250430
  6. XYNTHA [Suspect]
     Active Substance: MOROCTOCOG ALFA
     Dosage: 2000 IU, 2X/DAY
     Route: 040
     Dates: start: 20250528
  7. XYNTHA [Suspect]
     Active Substance: MOROCTOCOG ALFA
     Dosage: 1000 IU, ST
     Route: 040
     Dates: start: 20250610
  8. XYNTHA [Suspect]
     Active Substance: MOROCTOCOG ALFA
     Dosage: 1000 IU, ST
     Route: 040
     Dates: start: 20250611
  9. XYNTHA [Suspect]
     Active Substance: MOROCTOCOG ALFA
     Dosage: 500 IU, 1X/DAY
     Route: 040
     Dates: start: 20250611

REACTIONS (5)
  - Arthralgia [Unknown]
  - Mobility decreased [Unknown]
  - Ecchymosis [Unknown]
  - Joint swelling [Unknown]
  - Off label use [Unknown]

NARRATIVE: CASE EVENT DATE: 20250101
